FAERS Safety Report 9602575 (Version 1)
Quarter: 2013Q4

REPORT INFORMATION
  Report Type: Spontaneous
  Country: US (occurrence: US)
  Receive Date: 20131007
  Receipt Date: 20131007
  Transmission Date: 20140711
  Serious: No
  Sender: FDA-Public Use
  Company Number: US-PFIZER INC-2013284391

PATIENT
  Age: 36 Year
  Sex: Female

DRUGS (6)
  1. NEURONTIN [Suspect]
     Dosage: UNK
  2. METFORMIN HCL [Suspect]
     Dosage: UNK
  3. TYLENOL [Suspect]
     Dosage: UNK
  4. SYMBICORT [Suspect]
     Dosage: UNK
  5. VENTOLIN HFA [Suspect]
     Dosage: UNK
  6. RANITIDINE [Suspect]
     Dosage: UNK

REACTIONS (1)
  - Drug hypersensitivity [Unknown]
